FAERS Safety Report 4835666-5 (Version None)
Quarter: 2005Q4

REPORT INFORMATION
  Report Type: 
  Country: None (occurrence: None)
  Receive Date: 20051121
  Receipt Date: 20051109
  Transmission Date: 20060501
  Serious: Yes (Hospitalization)
  Sender: FDA-Public Use
  Company Number: HQWYE483810NOV05

PATIENT
  Age: 54 Year
  Sex: Female
  Weight: 85.9 kg

DRUGS (4)
  1. MYLOTARG [Suspect]
     Dosage: 12.4 MG 1X PER 1 DAY, INTRAVENOUS
     Route: 042
     Dates: start: 20051020, end: 20051020
  2. CYTARABINE [Concomitant]
  3. MESALAMINE [Concomitant]
  4. LEXAPRO [Concomitant]

REACTIONS (7)
  - BACTERIA STOOL IDENTIFIED [None]
  - CATHETER RELATED INFECTION [None]
  - CLOSTRIDIAL INFECTION [None]
  - CULTURE STOOL POSITIVE [None]
  - DIARRHOEA [None]
  - HERPES ZOSTER [None]
  - STAPHYLOCOCCAL BACTERAEMIA [None]
